FAERS Safety Report 14805768 (Version 5)
Quarter: 2024Q2

REPORT INFORMATION
  Report Type: Spontaneous
  Country: IT (occurrence: IT)
  Receive Date: 20180425
  Receipt Date: 20240415
  Transmission Date: 20240715
  Serious: Yes (Hospitalization, Other)
  Sender: FDA-Public Use
  Company Number: IT-ACCORD-065959

PATIENT
  Age: 52 Year
  Sex: Male

DRUGS (5)
  1. DOCETAXEL [Suspect]
     Active Substance: DOCETAXEL\DOCETAXEL ANHYDROUS
     Indication: Metastases to lymph nodes
     Dosage: UNK UNK, QW
  2. DOCETAXEL [Suspect]
     Active Substance: DOCETAXEL\DOCETAXEL ANHYDROUS
     Dosage: WEEKLY ADMINISTRATIONS IN CYCLES
     Dates: start: 201509
  3. CISPLATIN [Suspect]
     Active Substance: CISPLATIN
     Indication: Chemotherapy
     Dosage: 1 UNK, QCY
     Dates: start: 201509
  4. FLUOROURACIL [Concomitant]
     Active Substance: FLUOROURACIL
     Indication: Penile cancer
     Dosage: UNK
     Dates: start: 201506
  5. CAPECITABINE [Concomitant]
     Active Substance: CAPECITABINE
     Indication: Penile squamous cell carcinoma

REACTIONS (12)
  - Atypical haemolytic uraemic syndrome [Recovering/Resolving]
  - Haemolytic anaemia [Recovering/Resolving]
  - Anuria [Not Recovered/Not Resolved]
  - Haemoglobinaemia [Recovered/Resolved]
  - Blood creatinine increased [Recovering/Resolving]
  - Blood lactate dehydrogenase increased [Recovered/Resolved]
  - Blood bilirubin increased [Recovering/Resolving]
  - Thrombocytopenia [Recovered/Resolved]
  - Acute kidney injury [Recovering/Resolving]
  - Condition aggravated [Recovering/Resolving]
  - Neurotoxicity [Unknown]
  - Off label use [Unknown]

NARRATIVE: CASE EVENT DATE: 20160701
